FAERS Safety Report 7246427-4 (Version None)
Quarter: 2011Q1

REPORT INFORMATION
  Report Type: 
  Country: None (occurrence: None)
  Receive Date: 20110126
  Receipt Date: 20110112
  Transmission Date: 20110831
  Serious: Yes (Hospitalization, Other)
  Sender: FDA-Public Use
  Company Number: ES-ELI_LILLY_AND_COMPANY-ES201101002860

PATIENT
  Sex: Female
  Weight: 47 kg

DRUGS (8)
  1. CHLORTHALIDONE [Concomitant]
     Indication: CARDIAC DISORDER
     Dosage: UNK, DAILY (1/D)
     Route: 048
  2. FORTEO [Suspect]
     Indication: OSTEOPOROSIS
     Dosage: 20 UG, DAILY (1/D)
     Route: 058
     Dates: start: 20100914
  3. DIGOXIN [Concomitant]
     Indication: CARDIAC DISORDER
     Dosage: 1/2/24H
     Route: 048
  4. YATROX [Concomitant]
     Indication: NAUSEA
     Dosage: UNK, 2/D
     Route: 048
     Dates: end: 20101101
  5. DURAGESIC-100 [Concomitant]
     Indication: PAIN
     Dosage: 1PATCH/48H
  6. SEGURIL [Concomitant]
     Indication: CARDIAC DISORDER
     Dosage: UNK, 3/D
     Route: 048
  7. ALDACTONE [Concomitant]
     Indication: CARDIAC DISORDER
     Dosage: UNK, DAILY (1/D)
     Route: 048
  8. MOTILIUM [Concomitant]
     Indication: NAUSEA
     Dosage: UNK, 2/D
     Route: 048
     Dates: end: 20101101

REACTIONS (2)
  - CARDIAC FAILURE [None]
  - ACUTE PULMONARY OEDEMA [None]
